FAERS Safety Report 16711987 (Version 1)
Quarter: 2019Q3

REPORT INFORMATION
  Report Type: Spontaneous
  Country: DE (occurrence: DE)
  Receive Date: 20190816
  Receipt Date: 20190816
  Transmission Date: 20191004
  Serious: No
  Sender: FDA-Public Use
  Company Number: DE-JAZZ-2019-DE-009948

PATIENT

DRUGS (2)
  1. VYXEOS [Suspect]
     Active Substance: CYTARABINE\DAUNORUBICIN
     Dosage: UNK
     Route: 042
  2. VYXEOS [Suspect]
     Active Substance: CYTARABINE\DAUNORUBICIN
     Indication: PRODUCT USED FOR UNKNOWN INDICATION
     Dosage: 72,36 MG DAUNORUBICINE, LIPOSOMAL / 500 ML G5%
     Route: 042

REACTIONS (1)
  - Liquid product physical issue [Unknown]

NARRATIVE: CASE EVENT DATE: 20190712
